FAERS Safety Report 10695917 (Version 2)
Quarter: 2016Q4

REPORT INFORMATION
  Report Type: Spontaneous
  Country: US (occurrence: US)
  Receive Date: 20150107
  Receipt Date: 20161214
  Transmission Date: 20170206
  Serious: Yes (Other)
  Sender: FDA-Public Use
  Company Number: US-PFIZER INC-2015004576

PATIENT
  Sex: Female

DRUGS (5)
  1. LYRICA [Suspect]
     Active Substance: PREGABALIN
     Dosage: 75 MG, UNK
     Dates: start: 201412
  2. ENOXAPARIN [Suspect]
     Active Substance: ENOXAPARIN
     Indication: NEOPLASM MALIGNANT
     Dosage: 80 MG, 2X/DAY
  3. ENOXAPARIN [Suspect]
     Active Substance: ENOXAPARIN
     Indication: ANTICOAGULANT THERAPY
  4. LYRICA [Suspect]
     Active Substance: PREGABALIN
     Indication: NEUROPATHY PERIPHERAL
     Dosage: 25 MG, 1X/DAY
     Dates: start: 201408
  5. LYRICA [Suspect]
     Active Substance: PREGABALIN
     Dosage: 50 MG, UNK
     Dates: start: 201412

REACTIONS (6)
  - Skin ulcer [Not Recovered/Not Resolved]
  - Drug effect incomplete [Unknown]
  - Infected skin ulcer [Unknown]
  - Fatigue [Unknown]
  - Cellulitis [Unknown]
  - Drug tolerance [Unknown]

NARRATIVE: CASE EVENT DATE: 20141205
